FAERS Safety Report 10143647 (Version 2)
Quarter: 2014Q2

REPORT INFORMATION
  Report Type: Spontaneous
  Country: US (occurrence: US)
  Receive Date: 20140430
  Receipt Date: 20140619
  Transmission Date: 20141212
  Serious: No
  Sender: FDA-Public Use
  Company Number: US-PFIZER INC-2014118042

PATIENT
  Age: 5 Year
  Sex: Male
  Weight: 22.22 kg

DRUGS (1)
  1. QUILLIVANT XR [Suspect]
     Indication: PSYCHOMOTOR HYPERACTIVITY
     Dosage: 20 MG, DAILY
     Route: 048
     Dates: start: 20140426, end: 20140427

REACTIONS (6)
  - Muscle twitching [Not Recovered/Not Resolved]
  - Tongue disorder [Recovered/Resolved]
  - Gait disturbance [Recovered/Resolved]
  - Eye disorder [Recovered/Resolved]
  - Trismus [Recovered/Resolved]
  - Dyskinesia [Recovered/Resolved]
